FAERS Safety Report 7169967-5 (Version None)
Quarter: 2010Q4

REPORT INFORMATION
  Report Type: 
  Country: None (occurrence: None)
  Receive Date: 20101206
  Receipt Date: 20101119
  Transmission Date: 20110411
  Serious: Yes (Hospitalization)
  Sender: FDA-Public Use
  Company Number: 8049827

PATIENT
  Sex: Male
  Weight: 70 kg

DRUGS (4)
  1. LEVETIRACETAM [Suspect]
     Indication: CONVULSION
     Dosage: 500 MG BID ORAL
     Route: 048
     Dates: start: 20090601
  2. LACOSAMIDE [Suspect]
     Indication: CONVULSION
     Dosage: 100 MG, DAILY INTRAVENOUS
     Route: 042
     Dates: start: 20090620, end: 20090622
  3. AMPICILLIN W/SULBACTAM [Concomitant]
  4. VALPROATE SODIUM [Concomitant]

REACTIONS (5)
  - ACUTE PSYCHOSIS [None]
  - BRADYCARDIA [None]
  - COMPLEX PARTIAL SEIZURES [None]
  - GRAND MAL CONVULSION [None]
  - HALLUCINATION, AUDITORY [None]
